FAERS Safety Report 20673258 (Version 1)
Quarter: 2022Q2

REPORT INFORMATION
  Report Type: Spontaneous
  Country: BR (occurrence: BR)
  Receive Date: 20220405
  Receipt Date: 20220405
  Transmission Date: 20220721
  Serious: Yes (Other)
  Sender: FDA-Public Use
  Company Number: BR-ASTELLAS-2022US007601

PATIENT
  Age: 20 Year
  Sex: Female

DRUGS (3)
  1. XOSPATA [Suspect]
     Active Substance: GILTERITINIB
     Indication: Acute myeloid leukaemia
     Dosage: 120 MG, ONCE DAILY (AS A THIRD LINE)
     Route: 065
     Dates: start: 20220217
  2. XOSPATA [Suspect]
     Active Substance: GILTERITINIB
     Route: 065
  3. MIDOSTAURIN [Concomitant]
     Active Substance: MIDOSTAURIN
     Indication: Product used for unknown indication
     Dosage: UNK UNK, UNKNOWN FREQ.
     Route: 065

REACTIONS (5)
  - Acute myeloid leukaemia refractory [Unknown]
  - Blast cell count increased [Unknown]
  - Liver disorder [Unknown]
  - Alanine aminotransferase increased [Recovering/Resolving]
  - Off label use [Unknown]
